FAERS Safety Report 5890212-2 (Version None)
Quarter: 2008Q3

REPORT INFORMATION
  Report Type: 
  Country: None (occurrence: None)
  Receive Date: 20080919
  Receipt Date: 20080908
  Transmission Date: 20090109
  Serious: Yes (Other)
  Sender: FDA-Public Use
  Company Number: US-PFIZER INC-2008076000

PATIENT
  Sex: Female
  Weight: 111.6 kg

DRUGS (14)
  1. CHANTIX [Suspect]
     Indication: SMOKING CESSATION THERAPY
     Dates: start: 20071001
  2. VESICARE [Concomitant]
  3. WELLBUTRIN [Concomitant]
  4. VICODIN [Concomitant]
  5. TEGRETOL [Concomitant]
  6. LASIX [Concomitant]
  7. FIORICET [Concomitant]
  8. AMITRIPTYLINE HCL [Concomitant]
  9. BUSPIRONE HCL [Concomitant]
  10. HUMALOG [Concomitant]
  11. PROMETHAZINE [Concomitant]
  12. PRILOSEC [Concomitant]
  13. LIDODERM [Concomitant]
  14. LANTUS [Concomitant]

REACTIONS (3)
  - DIZZINESS [None]
  - LABYRINTHITIS [None]
  - STRESS [None]
